FAERS Safety Report 26125968 (Version 1)
Quarter: 2025Q4

REPORT INFORMATION
  Report Type: Spontaneous
  Country: US (occurrence: None)
  Receive Date: 20251204
  Receipt Date: 20251204
  Transmission Date: 20260117
  Serious: Yes (Disabling, Other)
  Sender: FDA-CTU
  Company Number: None

PATIENT
  Age: 8 Year
  Sex: Male
  Weight: 42.75 kg

DRUGS (3)
  1. ELEVIDYS [Suspect]
     Active Substance: DELANDISTROGENE MOXEPARVOVEC-ROKL
     Indication: Duchenne muscular dystrophy
     Dosage: OTHER STRENGTH : UNKNOWN;?FREQUENCY : ONCE;?
     Route: 042
     Dates: start: 20250422, end: 20250422
  2. Agamree (vamorolone) [Concomitant]
  3. LISINOPRIL [Concomitant]
     Active Substance: LISINOPRIL

REACTIONS (10)
  - Vomiting [None]
  - Pyrexia [None]
  - Nausea [None]
  - Fatigue [None]
  - Asthenia [None]
  - Mobility decreased [None]
  - Fall [None]
  - Dysstasia [None]
  - Gait disturbance [None]
  - General physical health deterioration [None]

NARRATIVE: CASE EVENT DATE: 20250520
